FAERS Safety Report 17289710 (Version 5)
Quarter: 2020Q1

REPORT INFORMATION
  Report Type: Report from Study
  Country: US (occurrence: US)
  Receive Date: 20200120
  Receipt Date: 20200324
  Transmission Date: 20200409
  Serious: Yes (Hospitalization)
  Sender: FDA-Public Use
  Company Number: US-BRISTOL-MYERS SQUIBB COMPANY-BMS-2020-003959

PATIENT
  Age: 78 Year
  Sex: Male
  Weight: 90.72 kg

DRUGS (6)
  1. SPIRONOLACTONE. [Concomitant]
     Active Substance: SPIRONOLACTONE
     Indication: OEDEMA
     Dosage: 20 MILLIGRAM, DAILY
     Route: 065
     Dates: start: 2018
  2. FUROSEMIDE. [Concomitant]
     Active Substance: FUROSEMIDE
     Indication: OEDEMA
     Dosage: 40 MILLIGRAM, BID
     Route: 065
     Dates: start: 2018
  3. APIXABAN [Suspect]
     Active Substance: APIXABAN
     Indication: CEREBROVASCULAR ACCIDENT PROPHYLAXIS
     Dosage: 5 MILLIGRAM, QD
     Route: 065
     Dates: start: 201906
  4. VYNDAMAX [Suspect]
     Active Substance: TAFAMIDIS
     Indication: AMYLOIDOSIS
     Dosage: 61 MILLIGRAM, QD
     Route: 048
     Dates: start: 20191111, end: 20191223
  5. POTASSIUM [Concomitant]
     Active Substance: POTASSIUM
     Indication: ATRIAL FIBRILLATION
     Dosage: 40 MILLIGRAM, QD
     Route: 048
     Dates: start: 2018
  6. VYNDAMAX [Suspect]
     Active Substance: TAFAMIDIS
     Indication: PRODUCT USED FOR UNKNOWN INDICATION
     Dosage: 61 MILLIGRAM, DAILY
     Route: 048
     Dates: start: 20200110

REACTIONS (2)
  - Bone disorder [Recovered/Resolved with Sequelae]
  - Off label use [Unknown]

NARRATIVE: CASE EVENT DATE: 20191222
